FAERS Safety Report 10589783 (Version 1)
Quarter: 2014Q4

REPORT INFORMATION
  Report Type: Spontaneous
  Country: US (occurrence: None)
  Receive Date: 20141117
  Receipt Date: 20141117
  Transmission Date: 20150529
  Serious: No
  Sender: FDA-Public Use
  Company Number: None

PATIENT
  Age: 62 Year
  Sex: Female
  Weight: 99.79 kg

DRUGS (9)
  1. BABY ASPRIN [Concomitant]
  2. OXYCODONE [Concomitant]
     Active Substance: OXYCODONE
  3. PROLIA [Suspect]
     Active Substance: DENOSUMAB
     Indication: OSTEOPOROSIS
     Dates: start: 20140929, end: 20140929
  4. VERAPAMIL [Concomitant]
     Active Substance: VERAPAMIL HYDROCHLORIDE
  5. MACROBID [Concomitant]
     Active Substance: NITROFURANTOIN\NITROFURANTOIN MONOHYDRATE
  6. TIMONAL MALATE [Concomitant]
  7. KLONOPIN [Concomitant]
     Active Substance: CLONAZEPAM
  8. SIMVASTATIN. [Concomitant]
     Active Substance: SIMVASTATIN
  9. FEMARA [Concomitant]
     Active Substance: LETROZOLE

REACTIONS (4)
  - Urinary tract infection [None]
  - Myalgia [None]
  - Arthritis [None]
  - Back pain [None]

NARRATIVE: CASE EVENT DATE: 20140929
